FAERS Safety Report 5875685-3 (Version None)
Quarter: 2008Q3

REPORT INFORMATION
  Report Type: 
  Country: None (occurrence: None)
  Receive Date: 20080904
  Receipt Date: 20080822
  Transmission Date: 20090109
  Serious: Yes (Other)
  Sender: FDA-Public Use
  Company Number: 2008AP002135

PATIENT
  Age: 35 Year
  Sex: Female

DRUGS (1)
  1. PAROXETINE HCL [Suspect]
     Indication: ANXIETY DISORDER
     Dosage: 20 MG;QD;PO
     Route: 048

REACTIONS (5)
  - ABNORMAL DREAMS [None]
  - AMNESIA [None]
  - APATHY [None]
  - DECREASED INTEREST [None]
  - INSOMNIA [None]
